FAERS Safety Report 25324359 (Version 3)
Quarter: 2025Q3

REPORT INFORMATION
  Report Type: Spontaneous
  Country: US (occurrence: US)
  Receive Date: 20250516
  Receipt Date: 20250728
  Transmission Date: 20251021
  Serious: Yes (Other)
  Sender: SANOFI AVENTIS
  Company Number: US-SA-2025SA135099

PATIENT
  Age: 81 Year
  Sex: Female

DRUGS (3)
  1. DUPIXENT [Suspect]
     Active Substance: DUPILUMAB
     Indication: Asthma
     Route: 058
     Dates: start: 20250117, end: 20250117
  2. DUPIXENT [Suspect]
     Active Substance: DUPILUMAB
     Dosage: 300 MG, QOW
     Route: 058
     Dates: start: 2025, end: 202506
  3. DUPIXENT [Suspect]
     Active Substance: DUPILUMAB
     Indication: Asthma
     Dosage: 300 MG, QOW
     Route: 058
     Dates: start: 2025

REACTIONS (15)
  - Squamous cell carcinoma of skin [Unknown]
  - Neuropathy peripheral [Unknown]
  - Peripheral swelling [Unknown]
  - Cyanosis [Recovered/Resolved]
  - Ear pain [Unknown]
  - Condition aggravated [Unknown]
  - Fatigue [Unknown]
  - Abdominal pain upper [Unknown]
  - Large intestine polyp [Unknown]
  - Gait disturbance [Unknown]
  - Joint stiffness [Unknown]
  - Pain in extremity [Recovering/Resolving]
  - Toothache [Unknown]
  - Arthralgia [Recovering/Resolving]
  - Malaise [Unknown]

NARRATIVE: CASE EVENT DATE: 20250101
